FAERS Safety Report 6039249-3 (Version None)
Quarter: 2009Q1

REPORT INFORMATION
  Report Type: 
  Country: None (occurrence: None)
  Receive Date: 20090115
  Receipt Date: 20090106
  Transmission Date: 20090719
  Serious: Yes (Other)
  Sender: FDA-Public Use
  Company Number: PHEH2007US03697

PATIENT
  Sex: Female

DRUGS (41)
  1. ZOMETA [Suspect]
     Indication: BREAST CANCER
     Dosage: UNK
     Dates: start: 20050101
  2. AREDIA [Suspect]
     Indication: BREAST CANCER
     Dosage: UNK
     Dates: start: 20050101
  3. ZELNORM [Concomitant]
  4. HERCEPTIN [Concomitant]
  5. CHEMOTHERAPEUTICS NOS [Concomitant]
  6. XOPENEX [Concomitant]
  7. SPIRIVA [Concomitant]
  8. K-DUR [Concomitant]
  9. ATROVENT [Concomitant]
  10. LASIX [Concomitant]
  11. WELLBUTRIN [Concomitant]
  12. LABETALOL [Concomitant]
  13. NEURONTIN [Concomitant]
  14. THEOPHYLLINE [Concomitant]
  15. ALBUTEROL [Concomitant]
  16. PENICILLIN NOS [Concomitant]
  17. OXYCONTIN [Concomitant]
     Dosage: 40 MG, BID
  18. ROXICODONE [Concomitant]
  19. BACLOFEN [Concomitant]
  20. PREDNISONE TAB [Concomitant]
  21. OMNICEF [Concomitant]
  22. CIPRO [Concomitant]
  23. ZYRTEC [Concomitant]
  24. EFFEXOR [Concomitant]
  25. ATIVAN [Concomitant]
  26. KETEK [Concomitant]
  27. NORMODYNE [Concomitant]
  28. MIRALAX [Concomitant]
  29. TORADOL [Concomitant]
     Dosage: 60 MG, ONCE/SINGLE
     Route: 030
  30. BEXTRA [Concomitant]
  31. FLEXERIL [Concomitant]
     Dosage: UNK
  32. DYAZIDE [Concomitant]
  33. DEXAMETHASONE TAB [Concomitant]
  34. PREVACID [Concomitant]
     Dosage: UNK
  35. CHLORPHEDRINE SR [Concomitant]
  36. REGLAN [Concomitant]
     Dosage: BEFORE MEALS
  37. LEVAQUIN [Concomitant]
     Dosage: 500 MG, UNK
  38. SKELAXIN [Concomitant]
  39. IBUPROFEN [Concomitant]
  40. PROTON PUMP INHIBITORS [Concomitant]
  41. VERSAPEN [Concomitant]

REACTIONS (10)
  - ANAEMIA [None]
  - ANXIETY [None]
  - DECREASED INTEREST [None]
  - INJURY [None]
  - OEDEMA PERIPHERAL [None]
  - OSTEOMYELITIS [None]
  - OSTEONECROSIS [None]
  - PAIN [None]
  - POOR DENTAL CONDITION [None]
  - POSTMENOPAUSE [None]
